FAERS Safety Report 14381662 (Version 6)
Quarter: 2018Q3

REPORT INFORMATION
  Report Type: Report from Study
  Country: US (occurrence: US)
  Receive Date: 20180112
  Receipt Date: 20180925
  Transmission Date: 20181010
  Serious: Yes (Death, Hospitalization, Other)
  Sender: FDA-Public Use
  Company Number: US-BAYER-2017-174400

PATIENT
  Age: 67 Year
  Sex: Male

DRUGS (5)
  1. STIVARGA [Suspect]
     Active Substance: REGORAFENIB
     Indication: RECTAL CANCER
     Dosage: 160 MG, QD
     Route: 048
     Dates: start: 20170908, end: 201709
  2. STIVARGA [Suspect]
     Active Substance: REGORAFENIB
     Indication: RECTAL CANCER
     Dosage: 80 MG, QD
     Route: 048
     Dates: start: 20180109, end: 20180130
  3. STIVARGA [Suspect]
     Active Substance: REGORAFENIB
     Indication: RECTAL CANCER
     Dosage: 160 MG, DAILY
     Route: 048
     Dates: start: 20170822, end: 2017
  4. STIVARGA [Suspect]
     Active Substance: REGORAFENIB
     Indication: RECTAL CANCER
     Dosage: 80 MG, QD
     Route: 048
  5. STIVARGA [Suspect]
     Active Substance: REGORAFENIB
     Indication: RECTAL CANCER
     Dosage: 40 MG, DAILY
     Route: 048
     Dates: start: 2017

REACTIONS (20)
  - Metastases to bone [None]
  - Dehydration [None]
  - Dizziness [Not Recovered/Not Resolved]
  - Blood pressure systolic increased [None]
  - Rectal cancer [None]
  - Headache [None]
  - Blister [None]
  - Pyrexia [None]
  - Musculoskeletal chest pain [None]
  - Fall [None]
  - Post procedural complication [Fatal]
  - Exfoliative rash [None]
  - Cancer pain [None]
  - Metastases to liver [None]
  - Tremor [Not Recovered/Not Resolved]
  - Ear discomfort [Not Recovered/Not Resolved]
  - Headache [None]
  - Middle ear effusion [None]
  - Blister [None]
  - Stomatitis [None]

NARRATIVE: CASE EVENT DATE: 2017
